FAERS Safety Report 16690924 (Version 5)
Quarter: 2019Q3

REPORT INFORMATION
  Report Type: Report from Study
  Country: None (occurrence: ES)
  Receive Date: 20190812
  Receipt Date: 20190825
  Transmission Date: 20191004
  Serious: Yes (Death, Hospitalization)
  Sender: FDA-Public Use
  Company Number: ES-ABBVIE-19K-144-2881004-00

PATIENT
  Age: 76 Year
  Sex: Male
  Weight: 75 kg

DRUGS (1)
  1. DUODOPA [Suspect]
     Active Substance: CARBIDOPA\LEVODOPA
     Indication: PARKINSON^S DISEASE
     Route: 050
     Dates: start: 20190402, end: 20190806

REACTIONS (5)
  - Constipation [Not Recovered/Not Resolved]
  - Parkinson^s disease [Fatal]
  - Hypophagia [Not Recovered/Not Resolved]
  - Choking sensation [Unknown]
  - Pneumonia [Fatal]

NARRATIVE: CASE EVENT DATE: 2019
